FAERS Safety Report 19233270 (Version 8)
Quarter: 2023Q1

REPORT INFORMATION
  Report Type: Report from Study
  Country: CA (occurrence: CA)
  Receive Date: 20210507
  Receipt Date: 20230321
  Transmission Date: 20230418
  Serious: Yes (Hospitalization, Disabling, Other)
  Sender: FDA-Public Use
  Company Number: CA-KOREA IPSEN PHARMA-2021-11363

PATIENT
  Age: 57 Year
  Sex: Female

DRUGS (3)
  1. LANREOTIDE ACETATE [Suspect]
     Active Substance: LANREOTIDE ACETATE
     Indication: Neuroendocrine tumour
     Dosage: 120 MG EVERY 4 WEEKS
     Route: 058
     Dates: start: 20200313
  2. LANREOTIDE ACETATE [Suspect]
     Active Substance: LANREOTIDE ACETATE
     Dosage: 120 MG EVERY 3 WEEKS
     Route: 058
     Dates: start: 20210602, end: 2021
  3. LANREOTIDE ACETATE [Suspect]
     Active Substance: LANREOTIDE ACETATE
     Dosage: 120 MG EVERY 3 WEEKS
     Route: 058

REACTIONS (43)
  - Renal disorder [Unknown]
  - Abdominal pain [Recovered/Resolved]
  - Vena cava thrombosis [Not Recovered/Not Resolved]
  - Pelvic neoplasm [Unknown]
  - Gastric ulcer [Not Recovered/Not Resolved]
  - Nausea [Recovered/Resolved]
  - Vomiting [Recovered/Resolved]
  - Haematemesis [Recovered/Resolved]
  - Abdominal pain [Recovered/Resolved]
  - Vomiting [Recovered/Resolved]
  - Abdominal pain [Not Recovered/Not Resolved]
  - Abdominal pain upper [Unknown]
  - Neoplasm progression [Unknown]
  - Metastases to abdominal cavity [Unknown]
  - Metastases to spine [Unknown]
  - Metastases to liver [Unknown]
  - Fatigue [Recovered/Resolved]
  - Abdominal pain lower [Unknown]
  - Flushing [Unknown]
  - Weight decreased [Unknown]
  - Pain [Not Recovered/Not Resolved]
  - Fatigue [Unknown]
  - Diarrhoea [Unknown]
  - Asthenia [Unknown]
  - Nausea [Not Recovered/Not Resolved]
  - Decreased appetite [Not Recovered/Not Resolved]
  - Vomiting [Not Recovered/Not Resolved]
  - Sleep disorder [Unknown]
  - Frequent bowel movements [Unknown]
  - Chest pain [Recovered/Resolved]
  - Tumour pain [Unknown]
  - Cardiac disorder [Unknown]
  - Back pain [Not Recovered/Not Resolved]
  - Blood creatinine increased [Unknown]
  - Off label use [Unknown]
  - Product storage error [Unknown]
  - Off label use [Unknown]
  - Off label use [Unknown]
  - Drug ineffective [Unknown]
  - Malaise [Unknown]
  - Renal pain [Unknown]
  - Pulmonary pain [Unknown]
  - Surgery [Unknown]

NARRATIVE: CASE EVENT DATE: 20210101
